FAERS Safety Report 8378897-2 (Version None)
Quarter: 2012Q2

REPORT INFORMATION
  Report Type: 
  Country: None (occurrence: None)
  Receive Date: 20120522
  Receipt Date: 20120522
  Transmission Date: 20120825
  Serious: Yes (Disabling)
  Sender: FDA-Public Use
  Company Number: None

PATIENT
  Sex: Female

DRUGS (1)
  1. PRAVASTATIN [Suspect]
     Indication: BLOOD CHOLESTEROL INCREASED

REACTIONS (2)
  - PAIN [None]
  - INSOMNIA [None]
